FAERS Safety Report 10036572 (Version 1)
Quarter: 2014Q1

REPORT INFORMATION
  Report Type: Spontaneous
  Country: US (occurrence: US)
  Receive Date: 20140326
  Receipt Date: 20140326
  Transmission Date: 20141002
  Serious: Yes (Other)
  Sender: FDA-Public Use
  Company Number: US-BIOGENIDEC-2014BI026306

PATIENT
  Sex: Female

DRUGS (1)
  1. AVONEX [Suspect]
     Indication: MULTIPLE SCLEROSIS
     Route: 030
     Dates: start: 20071127

REACTIONS (4)
  - Psychogenic seizure [Recovered/Resolved]
  - Thyroid disorder [Unknown]
  - Fall [Unknown]
  - Blood pressure abnormal [Unknown]
